FAERS Safety Report 17220420 (Version 1)
Quarter: 2019Q4

REPORT INFORMATION
  Report Type: Report from Study
  Country: IT (occurrence: IT)
  Receive Date: 20191231
  Receipt Date: 20191231
  Transmission Date: 20200122
  Serious: Yes (Hospitalization)
  Sender: FDA-Public Use
  Company Number: IT-MYLANLABS-2019M1132170

PATIENT
  Age: 68 Year
  Sex: Male

DRUGS (1)
  1. ALLOPURINOL. [Suspect]
     Active Substance: ALLOPURINOL
     Indication: HYPERURICAEMIA
     Dosage: 300 MILLIGRAM, QD
     Dates: start: 20190813, end: 20190906

REACTIONS (3)
  - Rash maculo-papular [Unknown]
  - Blister [Unknown]
  - Skin laceration [Unknown]

NARRATIVE: CASE EVENT DATE: 20190903
